FAERS Safety Report 6622891-6 (Version None)
Quarter: 2010Q1

REPORT INFORMATION
  Report Type: 
  Country: None (occurrence: None)
  Receive Date: 20100310
  Receipt Date: 20091231
  Transmission Date: 20100710
  Serious: Yes (Other)
  Sender: FDA-Public Use
  Company Number: US-BIOGENIDEC-2009BI042413

PATIENT
  Age: 28 Year
  Sex: Female

DRUGS (4)
  1. AVONEX [Suspect]
     Indication: MULTIPLE SCLEROSIS
  2. ORAL CONTRACEPTIVE [Concomitant]
     Indication: CONTRACEPTION
  3. ALBUTEROL [Concomitant]
     Indication: ASTHMA
  4. MULTI-VITAMINS [Concomitant]

REACTIONS (2)
  - HYPERSENSITIVITY [None]
  - SENSORY DISTURBANCE [None]
